FAERS Safety Report 9965450 (Version 1)
Quarter: 2014Q1

REPORT INFORMATION
  Report Type: Report from Study
  Country: US (occurrence: US)
  Receive Date: 20140305
  Receipt Date: 20140305
  Transmission Date: 20141002
  Serious: No
  Sender: FDA-Public Use
  Company Number: US-ABBVIE-13P-163-1125322-00

PATIENT
  Age: 46 Year
  Sex: Female

DRUGS (14)
  1. HUMIRA [Suspect]
     Indication: ANKYLOSING SPONDYLITIS
     Dates: start: 201303
  2. METHOTREXATE [Concomitant]
     Indication: ANKYLOSING SPONDYLITIS
  3. LISINOPRIL [Concomitant]
     Indication: BLOOD PRESSURE INCREASED
     Dosage: AT NIGHT
  4. TOPAMAX [Concomitant]
     Indication: MIGRAINE
     Dosage: AT NIGHT
  5. FOLIC ACID [Concomitant]
     Indication: PRODUCT USED FOR UNKNOWN INDICATION
     Dosage: 1MG DAILY
  6. HYDROCODONE [Concomitant]
     Indication: PRODUCT USED FOR UNKNOWN INDICATION
     Dosage: 7.5/500 MG ONE TABLET EVERY 6-8 HOURS AS NEEDED
  7. ALEVE [Concomitant]
     Indication: ANKYLOSING SPONDYLITIS
     Dosage: AT NIGHT
  8. FLEXERIL [Concomitant]
     Indication: MIGRAINE
     Dosage: AT NIGHT
  9. FLEXERIL [Concomitant]
     Indication: ANKYLOSING SPONDYLITIS
  10. FLEXERIL [Concomitant]
     Indication: FIBROMYALGIA
  11. MEDICATION FOR YEAST INFECTIONS [Concomitant]
     Indication: FUNGAL INFECTION
  12. AMBIEN [Concomitant]
     Indication: INSOMNIA
     Dosage: AT BEDTIME
  13. AXERT [Concomitant]
     Indication: MIGRAINE
  14. PHENERGAN [Concomitant]
     Indication: MIGRAINE

REACTIONS (7)
  - Drug dose omission [Recovered/Resolved]
  - Injection site pain [Recovered/Resolved]
  - Fibromyalgia [Recovered/Resolved]
  - Pain in extremity [Recovered/Resolved]
  - Anxiety [Recovered/Resolved]
  - Device malfunction [Not Recovered/Not Resolved]
  - Injection site haemorrhage [Not Recovered/Not Resolved]
